FAERS Safety Report 7009136-2 (Version None)
Quarter: 2010Q3

REPORT INFORMATION
  Report Type: 
  Country: None (occurrence: None)
  Receive Date: 20100923
  Receipt Date: 20090810
  Transmission Date: 20110219
  Serious: No
  Sender: FDA-Public Use
  Company Number: US-MYLANLABS-2009S1014360

PATIENT
  Sex: Female

DRUGS (1)
  1. FLUPHENAZINE HYDROCHLORIDE TABLETS, USP [Suspect]
     Indication: SCHIZOPHRENIA
     Route: 048
     Dates: start: 20070101, end: 20090807

REACTIONS (1)
  - INSOMNIA [None]
